FAERS Safety Report 4755370-1 (Version None)
Quarter: 2005Q3

REPORT INFORMATION
  Report Type: 
  Country: None (occurrence: None)
  Receive Date: 20050826
  Receipt Date: 20050406
  Transmission Date: 20060218
  Serious: Yes (Other)
  Sender: FDA-Public Use
  Company Number: USA-2002-0000644

PATIENT
  Age: 54 Year
  Sex: Male
  Weight: 71.7 kg

DRUGS (15)
  1. OXYCONTIN [Suspect]
     Indication: PAIN
     Dosage: 10 MG, BID, ORAL
     Route: 048
     Dates: start: 19990601, end: 19991029
  2. CATAPRES [Concomitant]
  3. SKELAXIN [Concomitant]
  4. NEURONTIN [Concomitant]
  5. ROXICET [Concomitant]
  6. CELEBREX [Concomitant]
  7. EFFEXOR XR [Concomitant]
  8. NAPROXEN [Concomitant]
  9. ARTHROTEC [Concomitant]
  10. ZANTAC [Concomitant]
  11. CELEXA [Concomitant]
  12. DURAGESIC-100 [Concomitant]
  13. PAXIL [Concomitant]
  14. VIAGRA [Concomitant]
  15. ELAVIL [Concomitant]

REACTIONS (16)
  - ANHEDONIA [None]
  - CYST [None]
  - DECREASED APPETITE [None]
  - DEPRESSION [None]
  - DISTURBANCE IN ATTENTION [None]
  - DRUG DEPENDENCE [None]
  - DRUG WITHDRAWAL SYNDROME [None]
  - DYSURIA [None]
  - EMOTIONAL DISTRESS [None]
  - FATIGUE [None]
  - INSOMNIA [None]
  - IRRITABILITY [None]
  - LIBIDO DECREASED [None]
  - LOSS OF CONTROL OF LEGS [None]
  - PAIN [None]
  - WEIGHT DECREASED [None]
